FAERS Safety Report 8548465-8 (Version None)
Quarter: 2012Q3

REPORT INFORMATION
  Report Type: 
  Country: None (occurrence: None)
  Receive Date: 20120730
  Receipt Date: 20120719
  Transmission Date: 20120928
  Serious: Yes (Other)
  Sender: FDA-Public Use
  Company Number: JP-BAYER-2012-057064

PATIENT
  Age: 71 Year
  Sex: Male
  Weight: 61 kg

DRUGS (11)
  1. CILNIDIPINE [Concomitant]
     Indication: HYPERTENSION
     Dosage: DAILY DOSE 10 MG
     Route: 048
     Dates: end: 20120625
  2. OLMESARTAN MEDOXOMIL [Concomitant]
     Indication: HYPERTENSION
     Dosage: DAILY DOSE 40 MG
     Route: 048
     Dates: end: 20120709
  3. MITIGLINIDE [Concomitant]
     Indication: DIABETES MELLITUS
     Dosage: DAILY DOSE 30 MG
     Route: 048
  4. MECOBALAMIN [Concomitant]
     Dosage: DAILY DOSE 1500 ?G
     Route: 048
  5. ALINAMIN F [FURSULTIAMINE] [Concomitant]
     Dosage: DAILY DOSE 25 MG
     Route: 048
  6. ATENOLOL [Concomitant]
     Indication: HYPERTENSION
     Dosage: DAILY DOSE 50 MG
     Route: 048
     Dates: end: 20120709
  7. NEXAVAR [Suspect]
     Dosage: DAILY DOSE 400 MG
     Route: 048
     Dates: start: 20120713
  8. LIPIDIL [Suspect]
     Indication: HYPERLIPIDAEMIA
     Dosage: DAILY DOSE 100 MG
     Route: 048
  9. NEXAVAR [Suspect]
     Indication: HEPATIC NEOPLASM MALIGNANT
     Dosage: DAILY DOSE 400 MG
     Route: 048
     Dates: start: 20120523, end: 20120604
  10. BEZATOL [Concomitant]
     Indication: HYPERLIPIDAEMIA
     Route: 048
  11. KALLIDINOGENASE [Concomitant]
     Dosage: DAILY DOSE 100 MG
     Route: 048

REACTIONS (4)
  - BLOOD CREATINE PHOSPHOKINASE INCREASED [None]
  - DYSPHONIA [None]
  - HEPATIC FUNCTION ABNORMAL [None]
  - BLOOD SODIUM DECREASED [None]
